FAERS Safety Report 24125623 (Version 1)
Quarter: 2024Q3

REPORT INFORMATION
  Report Type: Spontaneous
  Country: DE (occurrence: DE)
  Receive Date: 20240723
  Receipt Date: 20240723
  Transmission Date: 20241017
  Serious: Yes (Hospitalization, Other)
  Sender: SERVIER
  Company Number: None

PATIENT

DRUGS (13)
  1. PEGASPARGASE [Suspect]
     Active Substance: PEGASPARGASE
     Indication: B-cell prolymphocytic leukaemia
     Dosage: 810 IU
     Route: 065
     Dates: start: 20231211, end: 20231211
  2. BESPONSA [Suspect]
     Active Substance: INOTUZUMAB OZOGAMICIN
     Indication: B-cell prolymphocytic leukaemia
     Dosage: 0.41 MG
     Route: 042
     Dates: start: 20231107, end: 20231123
  3. PREDNISOLONE [Suspect]
     Active Substance: PREDNISOLONE
     Indication: B-cell prolymphocytic leukaemia
     Dosage: 10 MG
     Route: 065
     Dates: start: 20231205, end: 20231205
  4. DEXAMETHASONE ACETATE [Suspect]
     Active Substance: DEXAMETHASONE ACETATE
     Indication: B-cell prolymphocytic leukaemia
     Dosage: 2 MG, BID
     Route: 065
     Dates: start: 20231205
  5. CYTARABINE [Suspect]
     Active Substance: CYTARABINE
     Indication: B-cell prolymphocytic leukaemia
     Dosage: 30 MG
     Route: 065
     Dates: start: 20231205, end: 20231205
  6. CYTARABINE [Suspect]
     Active Substance: CYTARABINE
     Dosage: 1620 MG, BID
     Route: 065
     Dates: start: 20231210
  7. METHOTREXATE [Suspect]
     Active Substance: METHOTREXATE
     Indication: B-cell prolymphocytic leukaemia
     Dosage: 12 MG
     Route: 065
     Dates: start: 20231205, end: 20231205
  8. METHOTREXATE [Suspect]
     Active Substance: METHOTREXATE
     Dosage: 810 MG INFUSION OVER 36 HOURS
     Route: 065
     Dates: start: 20231206
  9. VINCRISTINE SULFATE [Suspect]
     Active Substance: VINCRISTINE SULFATE
     Indication: B-cell prolymphocytic leukaemia
     Dosage: 1.22 UNK, ON D1, D6
     Route: 065
     Dates: start: 20231206
  10. CYCLOPHOSPHAMIDE [Suspect]
     Active Substance: CYCLOPHOSPHAMIDE
     Indication: B-cell prolymphocytic leukaemia
     Dosage: 162 MG, 5 DOSES ON D2, D4 OF PROTOCOL
     Route: 065
     Dates: start: 20231207
  11. AMBISOME [Concomitant]
     Active Substance: AMPHOTERICIN B
     Indication: Immunosuppression
     Dosage: UNK
     Route: 065
     Dates: start: 20231102
  12. Novalgin [Concomitant]
     Indication: Product used for unknown indication
     Dosage: UNK
     Route: 048
     Dates: start: 20231208
  13. COTRIMOXAZOLE [Concomitant]
     Active Substance: SULFAMETHOXAZOLE\TRIMETHOPRIM
     Indication: Product used for unknown indication
     Dosage: UNK
     Route: 065

REACTIONS (3)
  - Myelosuppression [Recovered/Resolved]
  - Mucosal inflammation [Recovered/Resolved]
  - Pyrexia [Recovered/Resolved]

NARRATIVE: CASE EVENT DATE: 20231214
